FAERS Safety Report 9316812 (Version 2)
Quarter: 2015Q1

REPORT INFORMATION
  Report Type: Spontaneous
  Country: CA (occurrence: CA)
  Receive Date: 20130530
  Receipt Date: 20150202
  Transmission Date: 20150721
  Serious: Yes (Other)
  Sender: FDA-Public Use
  Company Number: CA-ROCHE-1229732

PATIENT
  Age: 16 Year
  Sex: Female

DRUGS (6)
  1. XOLAIR [Suspect]
     Active Substance: OMALIZUMAB
     Indication: ASTHMA
     Route: 058
     Dates: start: 20090831
  2. SINGULAIR [Concomitant]
     Active Substance: MONTELUKAST SODIUM
  3. AERIUS (CANADA) [Concomitant]
  4. XOLAIR [Suspect]
     Active Substance: OMALIZUMAB
     Route: 065
     Dates: start: 20130424
  5. ALVESCO [Concomitant]
     Active Substance: CICLESONIDE
  6. VENTOLIN [Concomitant]
     Active Substance: ALBUTEROL SULFATE

REACTIONS (6)
  - Vomiting [Unknown]
  - Pallor [Unknown]
  - Heart rate increased [Unknown]
  - Fatigue [Unknown]
  - Malaise [Unknown]
  - Feeling hot [Unknown]

NARRATIVE: CASE EVENT DATE: 20090903
